FAERS Safety Report 5338888-2 (Version None)
Quarter: 2007Q2

REPORT INFORMATION
  Report Type: 
  Country: None (occurrence: None)
  Receive Date: 20070530
  Receipt Date: 20070518
  Transmission Date: 20071010
  Serious: Yes (Hospitalization)
  Sender: FDA-Public Use
  Company Number: CA-ELI_LILLY_AND_COMPANY-CA200703000862

PATIENT
  Age: 77 Year
  Sex: Female

DRUGS (5)
  1. FORTEO [Suspect]
     Indication: OSTEOPOROSIS
     Dosage: 20 UG, DAILY (1/D)
     Route: 058
     Dates: start: 20051101
  2. SYNTHROID [Concomitant]
  3. MOTRIN [Concomitant]
  4. ACETAMINOPHEN [Concomitant]
  5. CALTRATE [Concomitant]

REACTIONS (2)
  - BREAST CANCER IN SITU [None]
  - POST PROCEDURAL INFECTION [None]
